FAERS Safety Report 6509532-3 (Version None)
Quarter: 2009Q4

REPORT INFORMATION
  Report Type: 
  Country: None (occurrence: None)
  Receive Date: 20091222
  Receipt Date: 20091216
  Transmission Date: 20100525
  Serious: Yes (Hospitalization, Other)
  Sender: FDA-Public Use
  Company Number: US-AMGEN-KDL377214

PATIENT
  Sex: Male

DRUGS (11)
  1. PROCRIT [Suspect]
     Indication: RENAL FAILURE CHRONIC
     Route: 058
     Dates: start: 20040101
  2. ARANESP [Suspect]
     Indication: RENAL FAILURE CHRONIC
     Route: 065
     Dates: start: 20090501
  3. PROGRAF [Concomitant]
  4. ZOCOR [Concomitant]
  5. NEURONTIN [Concomitant]
  6. PREDNISONE [Concomitant]
  7. CALCIUM [Concomitant]
  8. FLOMAX [Concomitant]
  9. METOPROLOL TARTRATE [Concomitant]
  10. ACTONEL [Concomitant]
  11. ARICEPT [Concomitant]

REACTIONS (1)
  - APLASIA PURE RED CELL [None]
